FAERS Safety Report 7766622-5 (Version None)
Quarter: 2011Q3

REPORT INFORMATION
  Report Type: 
  Country: None (occurrence: None)
  Receive Date: 20110916
  Receipt Date: 20110908
  Transmission Date: 20111222
  Serious: Yes (Hospitalization, Other)
  Sender: FDA-Public Use
  Company Number: DSU-2011-06713

PATIENT
  Age: 72 Year
  Sex: Male
  Weight: 78.0187 kg

DRUGS (2)
  1. WELCHOL [Suspect]
     Indication: HYPERLIPIDAEMIA
     Dosage: 2500 MG (1250 MG BID), PER ORAL
     Route: 048
  2. LIPITOR [Suspect]
     Indication: HYPERLIPIDAEMIA
     Dosage: PER ORAL
     Route: 048

REACTIONS (3)
  - CORONARY ARTERY OCCLUSION [None]
  - MYOPATHY [None]
  - MYOCARDIAL INFARCTION [None]
